FAERS Safety Report 8371415-4 (Version None)
Quarter: 2012Q2

REPORT INFORMATION
  Report Type: 
  Country: None (occurrence: None)
  Receive Date: 20120518
  Receipt Date: 20120511
  Transmission Date: 20120825
  Serious: Yes (Death, Other)
  Sender: FDA-Public Use
  Company Number: KR-FRI-1000030163

PATIENT
  Age: 70 Year
  Sex: Male

DRUGS (21)
  1. VENTOLIN [Concomitant]
     Dosage: 6 DF
     Route: 055
  2. CLARITHROMYCIN [Concomitant]
     Dosage: 2 DF
     Dates: start: 20111229
  3. ENOXAPARIN SODIUM [Concomitant]
     Dosage: 120 MG
     Route: 058
  4. PULMICAN [Concomitant]
     Dosage: 2 DF
     Route: 055
  5. MUCOMYST [Concomitant]
     Dosage: 2 DF
     Route: 055
  6. ALL OTHER THERAPEUTIC PRODUCTS [Concomitant]
     Route: 042
     Dates: start: 20120223
  7. ARIPIPRAZOLE [Concomitant]
     Indication: DRUG THERAPY
  8. ABILIFY [Concomitant]
     Dosage: 2 DF
     Route: 048
  9. GASMOTIN [Concomitant]
     Dosage: 1 DF
     Route: 048
  10. DIGOXIN [Concomitant]
     Dosage: 0.5 DF
     Route: 048
  11. ROFLUMILAST [Suspect]
     Indication: CHRONIC OBSTRUCTIVE PULMONARY DISEASE
     Dosage: 500 MCG
     Dates: start: 20120328, end: 20120411
  12. DOXOFYLLINE [Concomitant]
  13. ARIPIPRAZOLE [Concomitant]
     Indication: PSYCHOTIC DISORDER
  14. DISOLIN [Concomitant]
     Route: 042
  15. CLARITHROMYCIN [Concomitant]
     Route: 048
     Dates: start: 20120215
  16. ATROVENT [Concomitant]
     Dosage: 6 DF
     Route: 055
  17. CLARITHROMYCIN [Concomitant]
     Route: 048
     Dates: start: 20111229, end: 20120214
  18. AMIKIN [Concomitant]
     Route: 042
     Dates: start: 20120322
  19. HERBEN [Concomitant]
     Dosage: 3 DF
     Route: 048
  20. ALL OTHER THERAPEUTIC PRODUCTS [Concomitant]
     Route: 042
     Dates: start: 20120322
  21. PIPERACILLIN AND TAZOBACTAM [Concomitant]
     Dosage: 3 DF
     Route: 042
     Dates: start: 20120223

REACTIONS (2)
  - THROMBOCYTOPENIA [None]
  - HEART RATE INCREASED [None]
